FAERS Safety Report 20562902 (Version 2)
Quarter: 2022Q2

REPORT INFORMATION
  Report Type: Other
  Country: BR (occurrence: None)
  Receive Date: 20220307
  Receipt Date: 20220425
  Transmission Date: 20220720
  Serious: No
  Sender: FDA-Public Use
  Company Number: BR-ROCHE-3041775

PATIENT
  Age: 44 Year
  Sex: Male
  Weight: 80 kg

DRUGS (2)
  1. OCREVUS [Suspect]
     Active Substance: OCRELIZUMAB
     Indication: Multiple sclerosis
     Route: 042
     Dates: start: 20190912
  2. NEXON [Concomitant]
     Indication: Anxiety
     Dosage: 1 TABLET IN THE MORNING

REACTIONS (2)
  - Cholelithiasis [Not Recovered/Not Resolved]
  - Gastritis [Unknown]

NARRATIVE: CASE EVENT DATE: 20220214
